FAERS Safety Report 25481317 (Version 1)
Quarter: 2025Q2

REPORT INFORMATION
  Report Type: Spontaneous
  Country: PT (occurrence: PT)
  Receive Date: 20250626
  Receipt Date: 20250626
  Transmission Date: 20250716
  Serious: Yes (Other)
  Sender: ENDO
  Company Number: PT-ENDO USA, INC.-2025-001465

PATIENT
  Age: 2 Month
  Sex: Male

DRUGS (10)
  1. EDEX [Suspect]
     Active Substance: ALPROSTADIL
     Indication: Atrial septal defect
     Route: 065
  2. EDEX [Suspect]
     Active Substance: ALPROSTADIL
     Indication: Atrial septal defect
     Route: 065
  3. EDEX [Suspect]
     Active Substance: ALPROSTADIL
     Indication: Atrial septal defect
     Route: 065
  4. EDEX [Suspect]
     Active Substance: ALPROSTADIL
     Indication: Atrial septal defect
     Route: 065
  5. EDEX [Suspect]
     Active Substance: ALPROSTADIL
     Indication: Atrial septal defect
     Route: 065
  6. EDEX [Suspect]
     Active Substance: ALPROSTADIL
     Indication: Right-to-left cardiac shunt
  7. EDEX [Suspect]
     Active Substance: ALPROSTADIL
     Indication: Right-to-left cardiac shunt
  8. EDEX [Suspect]
     Active Substance: ALPROSTADIL
     Indication: Right-to-left cardiac shunt
  9. EDEX [Suspect]
     Active Substance: ALPROSTADIL
     Indication: Right-to-left cardiac shunt
  10. EDEX [Suspect]
     Active Substance: ALPROSTADIL
     Indication: Right-to-left cardiac shunt

REACTIONS (3)
  - Infantile apnoea [Unknown]
  - Bradycardia [Unknown]
  - Off label use [Recovered/Resolved]
